FAERS Safety Report 4549356-X (Version None)
Quarter: 2005Q1

REPORT INFORMATION
  Report Type: 
  Country: None (occurrence: None)
  Receive Date: 20050111
  Receipt Date: 20041215
  Transmission Date: 20050727
  Serious: Yes (Other)
  Sender: FDA-Public Use
  Company Number: DE-BRISTOL-MYERS SQUIBB COMPANY-12798625

PATIENT
  Age: 63 Year
  Sex: Female
  Weight: 85 kg

DRUGS (5)
  1. PACLITAXEL [Suspect]
     Indication: BREAST CANCER
     Dosage: IN 500 ML NACL
     Route: 042
     Dates: start: 20041111, end: 20041111
  2. DEXAMETHASONE [Concomitant]
     Indication: PREMEDICATION
     Route: 042
     Dates: start: 20041111, end: 20041111
  3. RANITIDINE [Concomitant]
     Indication: PREMEDICATION
     Route: 042
     Dates: start: 20041111, end: 20041111
  4. TROPISETRON [Concomitant]
     Indication: PREMEDICATION
     Route: 042
     Dates: start: 20041111, end: 20041111
  5. DIMETINDENE [Concomitant]
     Indication: PREMEDICATION
     Route: 042
     Dates: start: 20041111, end: 20041111

REACTIONS (1)
  - HYPERSENSITIVITY [None]
